FAERS Safety Report 23065277 (Version 1)
Quarter: 2023Q4

REPORT INFORMATION
  Report Type: Spontaneous
  Country: GB (occurrence: GB)
  Receive Date: 20231013
  Receipt Date: 20231013
  Transmission Date: 20240109
  Serious: Yes (Other)
  Sender: FDA-Public Use
  Company Number: None

PATIENT
  Age: 75 Year
  Sex: Male
  Weight: 64 kg

DRUGS (2)
  1. PEMBROLIZUMAB [Suspect]
     Active Substance: PEMBROLIZUMAB
     Indication: Renal cell carcinoma
     Dosage: 400 MILLIGRAM
     Dates: start: 20230623, end: 20230623
  2. LENVATINIB [Concomitant]
     Active Substance: LENVATINIB
     Indication: Renal cell carcinoma
     Dates: start: 20230623, end: 20230623

REACTIONS (2)
  - Myocarditis [Recovering/Resolving]
  - Myalgia [Recovering/Resolving]

NARRATIVE: CASE EVENT DATE: 20230701
